FAERS Safety Report 12175810 (Version 2)
Quarter: 2016Q4

REPORT INFORMATION
  Report Type: Spontaneous
  Country: US (occurrence: US)
  Receive Date: 20160314
  Receipt Date: 20161117
  Transmission Date: 20170207
  Serious: No
  Sender: FDA-Public Use
  Company Number: US-PFIZER INC-2014344396

PATIENT
  Age: 58 Year
  Sex: Female

DRUGS (16)
  1. LYRICA [Suspect]
     Active Substance: PREGABALIN
     Indication: NEUROPATHY PERIPHERAL
     Dosage: 150 MG, 2X/DAY
     Route: 048
     Dates: start: 20161109
  2. OXYCODONE [Concomitant]
     Active Substance: OXYCODONE
     Dosage: 20 MG, UNK
  3. CLARITIN [Concomitant]
     Active Substance: LORATADINE
     Dosage: 10 MG, DAILY
     Route: 048
     Dates: start: 20160407
  4. ESTRADIOL. [Concomitant]
     Active Substance: ESTRADIOL
     Dosage: 1 MG, DAILY
     Route: 048
     Dates: start: 20160718
  5. LORTADINE [Concomitant]
     Dosage: 10 MG, DAILY (1 TABLET BY MOUTH EVERY DAY)
     Route: 048
     Dates: start: 20161003
  6. METFORMIN [Concomitant]
     Active Substance: METFORMIN HYDROCHLORIDE
     Dosage: 1500 MG, DAILY (1 QAM, 2 QHS)
     Route: 048
     Dates: start: 20161107
  7. OXYCODONE [Concomitant]
     Active Substance: OXYCODONE
     Dosage: 5 MG, AS NEEDED (Q 6 HRS PRN)
     Route: 048
     Dates: start: 20161107
  8. RESTORIL [Concomitant]
     Active Substance: TEMAZEPAM
     Dosage: 15 MG, AS NEEDED (ONCE A DAY (AT BEDTIME))
     Route: 048
     Dates: start: 20160811
  9. TIZANIDINE. [Concomitant]
     Active Substance: TIZANIDINE
     Indication: MUSCLE SPASMS
     Dosage: 2 MG, AS NEEDED (TID)
     Route: 048
     Dates: start: 20161007
  10. TRIAMCINOLONE ACETONIDE. [Concomitant]
     Active Substance: TRIAMCINOLONE ACETONIDE
     Dosage: UNK UNK, 2X/DAY (0.1% TOPICAL )
     Route: 061
     Dates: start: 20160401
  11. NYSTATIN/TRIAMCINOLONE [Concomitant]
     Active Substance: NYSTATIN\TRIAMCINOLONE
     Dosage: UNK UNK, 2X/DAY (MORNING AND EVENING)[NYSTATIN: 100,000 UNIT/G]/[TRIAMCINOLONE ACETONIDE: 0.1UNIT/G]
     Route: 061
     Dates: start: 20151203
  12. IMITREX [Concomitant]
     Active Substance: SUMATRIPTAN SUCCINATE
     Indication: HEADACHE
     Dosage: 100 MG, UNK (ONSET OF HA, MAY REPEAT IN 1 HOUR)
     Route: 048
     Dates: start: 20161007
  13. OMEPRAZOLE. [Concomitant]
     Active Substance: OMEPRAZOLE
     Dosage: 20 MG, DAILY (EVERY DAY BEFORE A MEAL)
     Route: 048
     Dates: start: 20161031
  14. TRAMADOL. [Concomitant]
     Active Substance: TRAMADOL
     Indication: PAIN
     Dosage: UNK UNK, AS NEEDED (1-2 PO Q 4 HR )
     Route: 048
     Dates: start: 20161007
  15. XANAX [Concomitant]
     Active Substance: ALPRAZOLAM
     Dosage: 1 MG, AS NEEDED (TID)
     Route: 048
     Dates: start: 20161107
  16. AMARYL [Concomitant]
     Active Substance: GLIMEPIRIDE
     Dosage: 2 MG, 2X/DAY
     Route: 048
     Dates: start: 20161107

REACTIONS (1)
  - Pain [Unknown]
